FAERS Safety Report 14837163 (Version 1)
Quarter: 2018Q2

REPORT INFORMATION
  Report Type: Spontaneous
  Country: NL (occurrence: NL)
  Receive Date: 20180502
  Receipt Date: 20180502
  Transmission Date: 20180711
  Serious: Yes (Death, Other)
  Sender: FDA-Public Use
  Company Number: NL-ACS-001081

PATIENT
  Age: 50 Year

DRUGS (8)
  1. LOPERAMIDE [Concomitant]
     Active Substance: LOPERAMIDE
     Dosage: LOPERAMIDE 1 MG (ORAL SOLUTION) THREE TIMES DAILY, SOLUTION
     Route: 048
  2. PHENYTOIN. [Concomitant]
     Active Substance: PHENYTOIN
     Dosage: THE DOSE WAS THEN INCREASED TO 75 MG THREE TIMES DAILY.
     Route: 042
  3. CARBASALATE CALCIUM [Concomitant]
     Active Substance: CARBASPIRIN
     Route: 065
  4. ATORVASTATIN [Concomitant]
     Active Substance: ATORVASTATIN
     Route: 065
  5. ESOMEPRAZOLE [Concomitant]
     Active Substance: ESOMEPRAZOLE
  6. DIAZEPAM. [Concomitant]
     Active Substance: DIAZEPAM
     Dosage: ?
  7. MEROPENEM. [Suspect]
     Active Substance: MEROPENEM
     Indication: PNEUMONIA
     Route: 042
  8. VALPROIC ACID. [Interacting]
     Active Substance: VALPROIC ACID
     Indication: EPILEPSY
     Dosage: THE DOSE WAS THEN INCREASED TO 800 MG THREE TIMES DAILY.
     Route: 042

REACTIONS (3)
  - Drug interaction [Unknown]
  - Anticonvulsant drug level below therapeutic [Unknown]
  - Drug ineffective [Fatal]
